FAERS Safety Report 24584356 (Version 2)
Quarter: 2024Q4

REPORT INFORMATION
  Report Type: Spontaneous
  Country: US (occurrence: US)
  Receive Date: 20241106
  Receipt Date: 20241128
  Transmission Date: 20250115
  Serious: No
  Sender: NOVARTIS
  Company Number: US-002147023-NVSC2024US215050

PATIENT
  Sex: Male

DRUGS (1)
  1. PLUVICTO [Suspect]
     Active Substance: LUTETIUM LU-177 VIPIVOTIDE TETRAXETAN
     Indication: Prostate cancer
     Dosage: UNK (EVERY 6-10 WEEKS)
     Route: 042
     Dates: start: 20240919, end: 20241121

REACTIONS (2)
  - General physical health deterioration [Unknown]
  - Laboratory test abnormal [Unknown]
